FAERS Safety Report 8955546 (Version 1)
Quarter: 2012Q4

REPORT INFORMATION
  Report Type: Spontaneous
  Country: US (occurrence: None)
  Receive Date: 20121205
  Receipt Date: 20121205
  Transmission Date: 20130627
  Serious: No
  Sender: FDA-Public Use
  Company Number: None

PATIENT

DRUGS (2)
  1. ROPINIROLE HYDROCHLORIDE [Suspect]
     Dosage: Tablet   oral   3 mg
     Route: 048
  2. RISPERIDONE [Suspect]
     Dosage: Tablet   oral   3 mg
     Route: 048

REACTIONS (5)
  - Fall [None]
  - Wrong drug administered [None]
  - Medication error [None]
  - Drug name confusion [None]
  - Circumstance or information capable of leading to medication error [None]
